FAERS Safety Report 7363703-5 (Version None)
Quarter: 2011Q1

REPORT INFORMATION
  Report Type: 
  Country: None (occurrence: None)
  Receive Date: 20110321
  Receipt Date: 20110110
  Transmission Date: 20110831
  Serious: No
  Sender: FDA-Public Use
  Company Number: A0849716A

PATIENT
  Age: 46 Year
  Sex: Female

DRUGS (2)
  1. PROMACTA [Suspect]
     Indication: IDIOPATHIC THROMBOCYTOPENIC PURPURA
     Dosage: 50MG PER DAY
     Route: 048
     Dates: start: 20100118
  2. NEXIUM [Concomitant]

REACTIONS (5)
  - VISUAL IMPAIRMENT [None]
  - VITREOUS FLOATERS [None]
  - MIGRAINE [None]
  - ALOPECIA [None]
  - VISION BLURRED [None]
